FAERS Safety Report 16159933 (Version 1)
Quarter: 2019Q2

REPORT INFORMATION
  Report Type: Other
  Country: US (occurrence: RU)
  Receive Date: 20190404
  Receipt Date: 20190404
  Transmission Date: 20190711
  Serious: Yes (Life-Threatening, Other)
  Sender: FDA-Public Use
  Company Number: RU-BRECKENRIDGE PHARMACEUTICAL, INC.-2065311

PATIENT

DRUGS (3)
  1. KETOPROFEN. [Suspect]
     Active Substance: KETOPROFEN
  2. TOLPERISONE [Concomitant]
     Active Substance: TOLPERISONE
  3. MELOXICAM. [Suspect]
     Active Substance: MELOXICAM
     Indication: OSTEOCHONDROSIS

REACTIONS (2)
  - Congestive cardiomyopathy [None]
  - Left ventricular dysfunction [None]
